FAERS Safety Report 7558361-0 (Version None)
Quarter: 2011Q2

REPORT INFORMATION
  Report Type: 
  Country: None (occurrence: None)
  Receive Date: 20110620
  Receipt Date: 20110607
  Transmission Date: 20111010
  Serious: Yes (Hospitalization, Other)
  Sender: FDA-Public Use
  Company Number: PHEH2010US03416

PATIENT
  Sex: Female

DRUGS (3)
  1. ZOMETA [Suspect]
     Dosage: UNK
     Dates: end: 20060701
  2. FEMARA [Concomitant]
  3. AREDIA [Suspect]

REACTIONS (51)
  - ANXIETY [None]
  - ANHEDONIA [None]
  - METASTASES TO BONE [None]
  - HYPOAESTHESIA [None]
  - VERTEBRAL FORAMINAL STENOSIS [None]
  - RENAL CYST [None]
  - OEDEMA PERIPHERAL [None]
  - MITRAL VALVE INCOMPETENCE [None]
  - DIVERTICULUM INTESTINAL [None]
  - OSTEONECROSIS OF JAW [None]
  - PAIN [None]
  - ATELECTASIS [None]
  - NERVE COMPRESSION [None]
  - FATIGUE [None]
  - CONGENITAL CYSTIC KIDNEY DISEASE [None]
  - DEMENTIA [None]
  - BRONCHIECTASIS [None]
  - INJURY [None]
  - MUSCULOSKELETAL PAIN [None]
  - OSTEOPENIA [None]
  - SPINAL COMPRESSION FRACTURE [None]
  - EXOSTOSIS [None]
  - BURSITIS [None]
  - ROTATOR CUFF SYNDROME [None]
  - BONE LESION [None]
  - ATTENTION DEFICIT/HYPERACTIVITY DISORDER [None]
  - CARDIOMYOPATHY [None]
  - NORMAL PRESSURE HYDROCEPHALUS [None]
  - BLADDER PROLAPSE [None]
  - INTERVERTEBRAL DISC DEGENERATION [None]
  - SYNOVIAL CYST [None]
  - OSTEOARTHRITIS [None]
  - EMPHYSEMA [None]
  - CARDIAC PSEUDOANEURYSM [None]
  - RENAL CYST HAEMORRHAGE [None]
  - ARTHRITIS [None]
  - UTERINE PROLAPSE [None]
  - DERMAL CYST [None]
  - COUGH [None]
  - CARDIAC FAILURE CONGESTIVE [None]
  - PATHOLOGICAL FRACTURE [None]
  - PULMONARY FIBROSIS [None]
  - CYST [None]
  - SCAPULA FRACTURE [None]
  - EJECTION FRACTION DECREASED [None]
  - GAIT DISTURBANCE [None]
  - LUNG NEOPLASM [None]
  - CARDIOMEGALY [None]
  - INCONTINENCE [None]
  - URINARY TRACT INFECTION [None]
  - PARAESTHESIA [None]
